FAERS Safety Report 15772192 (Version 1)
Quarter: 2018Q4

REPORT INFORMATION
  Report Type: Spontaneous
  Country: CZ (occurrence: CZ)
  Receive Date: 20181228
  Receipt Date: 20181228
  Transmission Date: 20190205
  Serious: Yes (Hospitalization, Other)
  Sender: FDA-Public Use
  Company Number: CZ-SAKK-2018SA392423AA

PATIENT
  Age: 75 Year
  Sex: Male

DRUGS (1)
  1. CABAZITAXEL [Suspect]
     Active Substance: CABAZITAXEL
     Indication: PROSTATE CANCER
     Dosage: SECOND LINE OF CHEMOTHERAPY WITH KABAZITAXEL (80% REDUCTION, BECAUSE OF PREVIOUS TOXICITY) STARTED F
     Dates: start: 20181011

REACTIONS (5)
  - Jaundice [Unknown]
  - Anaemia [Unknown]
  - Neutropenia [Unknown]
  - Haematotoxicity [Unknown]
  - Hepatotoxicity [Unknown]
